FAERS Safety Report 12702943 (Version 2)
Quarter: 2016Q4

REPORT INFORMATION
  Report Type: Report from Study
  Country: US (occurrence: US)
  Receive Date: 20160831
  Receipt Date: 20161010
  Transmission Date: 20170207
  Serious: Yes (Hospitalization, Other)
  Sender: FDA-Public Use
  Company Number: US-GILEAD-2016-0228940

PATIENT
  Age: 59 Year
  Sex: Male
  Weight: 58.96 kg

DRUGS (2)
  1. AMBRISENTAN [Suspect]
     Active Substance: AMBRISENTAN
     Indication: PRODUCT USED FOR UNKNOWN INDICATION
     Dosage: 10 MG, QD
     Route: 065
     Dates: start: 20120830
  2. REVATIO [Concomitant]
     Active Substance: SILDENAFIL CITRATE

REACTIONS (8)
  - Accident [Unknown]
  - Testicular swelling [Unknown]
  - Thrombosis [Unknown]
  - Vomiting [Unknown]
  - Fall [Unknown]
  - Testicular pain [Unknown]
  - Joint swelling [Unknown]
  - Contusion [Unknown]
